FAERS Safety Report 4963488-3 (Version None)
Quarter: 2006Q1

REPORT INFORMATION
  Report Type: 
  Country: None (occurrence: None)
  Receive Date: 20060329
  Receipt Date: 20060111
  Transmission Date: 20060701
  Serious: Yes (Hospitalization, Disabling)
  Sender: FDA-Public Use
  Company Number: 600683

PATIENT
  Age: 69 Year
  Sex: Male
  Weight: 70.3075 kg

DRUGS (8)
  1. POLYGAM S/D [Suspect]
     Indication: PRIMARY IMMUNODEFICIENCY SYNDROME
     Dosage: 60 GM, EVERY 3 WK; IV
     Route: 042
     Dates: start: 19990105, end: 19990105
  2. ASPIRIN [Concomitant]
  3. SIMVASTATIN [Concomitant]
  4. ALLEGRA [Concomitant]
  5. HYDROCHLOROTHIAZIDE [Concomitant]
  6. GABAPENTIN [Concomitant]
  7. ZANTAC [Concomitant]
  8. TRENTAL ^AVENTIS PHARMA^ [Concomitant]

REACTIONS (6)
  - BLOOD PRESSURE DIASTOLIC DECREASED [None]
  - CAROTID ARTERY STENOSIS [None]
  - CEREBRAL INFARCTION [None]
  - HEMIANOPIA HOMONYMOUS [None]
  - ISCHAEMIC STROKE [None]
  - VISION BLURRED [None]
